FAERS Safety Report 4950239-1 (Version None)
Quarter: 2006Q1

REPORT INFORMATION
  Report Type: 
  Country: None (occurrence: None)
  Receive Date: 20060315
  Receipt Date: 20060303
  Transmission Date: 20060701
  Serious: Yes (Other)
  Sender: FDA-Public Use
  Company Number: 2006033184

PATIENT
  Sex: Male

DRUGS (1)
  1. ZYVOX [Suspect]
     Indication: DIABETIC FOOT INFECTION

REACTIONS (2)
  - CONDITION AGGRAVATED [None]
  - RENAL FAILURE [None]
